FAERS Safety Report 21998029 (Version 1)
Quarter: 2023Q1

REPORT INFORMATION
  Report Type: Report from Study
  Country: FR (occurrence: FR)
  Receive Date: 20230216
  Receipt Date: 20230216
  Transmission Date: 20230417
  Serious: Yes (Other)
  Sender: FDA-Public Use
  Company Number: FR-KARYOPHARM THERAPEUTICS, INC.-2023KPT000768

PATIENT

DRUGS (2)
  1. SELINEXOR [Suspect]
     Active Substance: SELINEXOR
     Indication: Product used for unknown indication
     Dosage: UNK
     Route: 048
  2. SELINEXOR [Suspect]
     Active Substance: SELINEXOR
     Dosage: 80 MG, WEEKLY
     Route: 048

REACTIONS (5)
  - Disease progression [Unknown]
  - General physical condition abnormal [Unknown]
  - Hyponatraemia [Recovered/Resolved]
  - Therapy cessation [Unknown]
  - Therapy interrupted [Recovered/Resolved]
